FAERS Safety Report 8825637 (Version 1)
Quarter: 2012Q4

REPORT INFORMATION
  Report Type: 
  Country: US (occurrence: US)
  Receive Date: 20121004
  Receipt Date: 20121004
  Transmission Date: 20130627
  Serious: Yes (Death)
  Sender: FDA-Public Use
  Company Number: US-BRISTOL-MYERS SQUIBB COMPANY-16955031

PATIENT
  Age: 76 Year
  Sex: Female
  Weight: 86 kg

DRUGS (2)
  1. AMIKACIN SULFATE [Suspect]
     Indication: MENINGITIS BACTERIAL
     Dosage: intrathecal;20 mg;33 days
     Route: 042
  2. MEROPENEM [Suspect]
     Indication: MENINGITIS BACTERIAL
     Route: 042

REACTIONS (2)
  - Systemic candida [Fatal]
  - Fungaemia [None]
